FAERS Safety Report 7653352-3 (Version None)
Quarter: 2011Q3

REPORT INFORMATION
  Report Type: 
  Country: None (occurrence: None)
  Receive Date: 20110803
  Receipt Date: 20110730
  Transmission Date: 20111222
  Serious: Yes (Other)
  Sender: FDA-Public Use
  Company Number: US-PFIZER INC-2011173700

PATIENT
  Sex: Female
  Weight: 61.5 kg

DRUGS (10)
  1. PROTONIX [Concomitant]
     Dosage: UNK
  2. OXYCODONE [Concomitant]
     Dosage: UNK
  3. ACYCLOVIR [Concomitant]
     Indication: NEOPLASM MALIGNANT
     Dosage: UNK
  4. POTASSIUM [Concomitant]
     Dosage: UNK
  5. CITALOPRAM [Concomitant]
     Dosage: UNK
  6. CIPROFLOXACIN [Concomitant]
     Dosage: UNK
  7. ZOFRAN [Concomitant]
     Dosage: UNK
  8. COMPAZINE [Concomitant]
     Dosage: UNK
  9. ALLOPURINOL [Concomitant]
     Dosage: UNK
  10. VFEND [Suspect]
     Indication: ANTIFUNGAL TREATMENT
     Dosage: 250 MG, 2X/DAY
     Route: 048
     Dates: start: 20110727

REACTIONS (5)
  - EYE SWELLING [None]
  - OCULAR DISCOMFORT [None]
  - PLATELET COUNT DECREASED [None]
  - VISUAL IMPAIRMENT [None]
  - RED BLOOD CELL COUNT ABNORMAL [None]
